FAERS Safety Report 6107644-X (Version None)
Quarter: 2009Q1

REPORT INFORMATION
  Report Type: 
  Country: None (occurrence: None)
  Receive Date: 20090309
  Receipt Date: 20090302
  Transmission Date: 20090719
  Serious: Yes (Other)
  Sender: FDA-Public Use
  Company Number: AU-ASTRAZENECA-2009AP01680

PATIENT
  Sex: Female

DRUGS (3)
  1. SEROQUEL [Suspect]
     Indication: ANXIETY DISORDER
     Dosage: 2 DOSES
     Route: 048
  2. SEROQUEL [Suspect]
     Indication: PANIC ATTACK
     Dosage: 2 DOSES
     Route: 048
  3. SEROQUEL [Suspect]
     Indication: DEPRESSION
     Dosage: 2 DOSES
     Route: 048

REACTIONS (2)
  - FEELING ABNORMAL [None]
  - TARDIVE DYSKINESIA [None]
